FAERS Safety Report 11275260 (Version 1)
Quarter: 2015Q3

REPORT INFORMATION
  Report Type: Spontaneous
  Country: US (occurrence: None)
  Receive Date: 20150714
  Receipt Date: 20150714
  Transmission Date: 20151125
  Serious: Yes (Death, Other)
  Sender: FDA-Public Use
  Company Number: 2015HINLIT0560

PATIENT
  Age: 34 Year
  Sex: Male

DRUGS (2)
  1. ZIDOVUDINE (ZIDOVUDINE) UNKNOWN) [Suspect]
     Active Substance: ZIDOVUDINE
     Indication: EPSTEIN-BARR VIRUS INFECTION
     Dosage: 1 CYCLE OF HIGH-DOSE
     Route: 042
  2. METHOTREXATE (METHOTREXATE) [Suspect]
     Active Substance: METHOTREXATE
     Indication: PRODUCT USED FOR UNKNOWN INDICATION
     Dosage: 1 CYCLE OF HIGH-DOSE, UNKNOWN

REACTIONS (3)
  - Mucosal inflammation [None]
  - Diarrhoea [None]
  - Off label use [None]
